FAERS Safety Report 16994900 (Version 1)
Quarter: 2019Q4

REPORT INFORMATION
  Report Type: Report from Study
  Country: TW (occurrence: TW)
  Receive Date: 20191105
  Receipt Date: 20191105
  Transmission Date: 20200122
  Serious: Yes (Hospitalization, Other)
  Sender: FDA-Public Use
  Company Number: PHHO2008TW07258

PATIENT
  Age: 70 Year
  Sex: Male
  Weight: 54 kg

DRUGS (5)
  1. MAGNESIUM OXIDE. [Concomitant]
     Active Substance: MAGNESIUM OXIDE
     Indication: CONSTIPATION
     Dosage: 1 DF, TID
     Route: 048
     Dates: start: 20080216
  2. EVEROLIMUS. [Suspect]
     Active Substance: EVEROLIMUS
     Dosage: } 5 MG / DAY
     Route: 048
     Dates: start: 20080707
  3. METOCLOPRAMIDE. [Concomitant]
     Active Substance: METOCLOPRAMIDE
     Indication: DECREASED APPETITE
     Dosage: 5 MG, TID
     Route: 048
     Dates: start: 20080414
  4. FARLUTAL [Concomitant]
     Active Substance: MEDROXYPROGESTERONE ACETATE
     Indication: DECREASED APPETITE
     Dosage: 500 MG, QD
     Route: 048
     Dates: start: 20080512
  5. EVEROLIMUS. [Suspect]
     Active Substance: EVEROLIMUS
     Indication: HEPATIC CANCER METASTATIC
     Dosage: 5 MG, QD
     Route: 048
     Dates: start: 20080218, end: 20080606

REACTIONS (2)
  - Interstitial lung disease [Recovering/Resolving]
  - Portal vein thrombosis [Unknown]

NARRATIVE: CASE EVENT DATE: 20080606
